FAERS Safety Report 8631852 (Version 2)
Quarter: 2013Q3

REPORT INFORMATION
  Report Type: Spontaneous
  Country: US (occurrence: US)
  Receive Date: 20120625
  Receipt Date: 20130723
  Transmission Date: 20140515
  Serious: Yes (Hospitalization, Other)
  Sender: FDA-Public Use
  Company Number: US-JNJFOC-20120606988

PATIENT
  Age: 35 Year
  Sex: Female
  Weight: 95.26 kg

DRUGS (6)
  1. REMICADE [Suspect]
     Indication: CROHN^S DISEASE
     Route: 042
  2. REMICADE [Suspect]
     Indication: CROHN^S DISEASE
     Route: 042
     Dates: start: 201112
  3. SOLU MEDROL [Concomitant]
     Indication: PREMEDICATION
     Route: 065
  4. TAGAMET [Concomitant]
     Indication: PREMEDICATION
     Route: 065
  5. BENADRYL [Concomitant]
     Indication: PREMEDICATION
     Route: 065
  6. ASPIRIN [Concomitant]
     Indication: PREMEDICATION
     Route: 065

REACTIONS (7)
  - Infusion related reaction [Recovered/Resolved]
  - Hot flush [Recovered/Resolved]
  - Adverse reaction [Unknown]
  - Autonomic nervous system imbalance [Recovered/Resolved]
  - Serum sickness-like reaction [Recovering/Resolving]
  - Crohn^s disease [Unknown]
  - Type IV hypersensitivity reaction [Unknown]
